FAERS Safety Report 8953715 (Version 1)
Quarter: 2012Q4

REPORT INFORMATION
  Report Type: Report from Study
  Country: BW (occurrence: BW)
  Receive Date: 20121206
  Receipt Date: 20121206
  Transmission Date: 20130627
  Serious: Yes (Hospitalization)
  Sender: FDA-Public Use
  Company Number: BW-ABBOTT-12P-019-1013700-00

PATIENT
  Age: 26 Year
  Sex: Female
  Weight: 59 kg

DRUGS (2)
  1. ALUVIA [Suspect]
     Indication: HIV INFECTION
     Dosage: 400/100mg
     Route: 048
     Dates: start: 20121113, end: 20121115
  2. TRUVADA [Concomitant]
     Indication: HIV INFECTION
     Dosage: 200/300mg
     Route: 048
     Dates: start: 20121113, end: 20121114

REACTIONS (1)
  - Abortion spontaneous [Unknown]
